FAERS Safety Report 8002542-9 (Version None)
Quarter: 2011Q4

REPORT INFORMATION
  Report Type: 
  Country: None (occurrence: None)
  Receive Date: 20111222
  Receipt Date: 20111213
  Transmission Date: 20120403
  Serious: Yes (Hospitalization)
  Sender: FDA-Public Use
  Company Number: GB-JNJFOC-20111206117

PATIENT
  Age: 92 Year
  Sex: Male

DRUGS (2)
  1. IBUPROFEN [Suspect]
     Indication: NECK PAIN
     Route: 048
     Dates: end: 20111122
  2. LEVOTHYROXINE SODIUM [Concomitant]
     Indication: HYPOTHYROIDISM
     Route: 048

REACTIONS (4)
  - DYSPNOEA [None]
  - ATRIAL FIBRILLATION [None]
  - OESOPHAGITIS [None]
  - GASTRITIS [None]
